FAERS Safety Report 7833445-8 (Version None)
Quarter: 2011Q4

REPORT INFORMATION
  Report Type: 
  Country: None (occurrence: None)
  Receive Date: 20111024
  Receipt Date: 20100717
  Transmission Date: 20120403
  Serious: No
  Sender: FDA-Public Use
  Company Number: US-BAYER-201028363NA

PATIENT
  Age: 97 Year
  Sex: Female

DRUGS (1)
  1. CIPRO [Suspect]
     Indication: PRODUCT USED FOR UNKNOWN INDICATION
     Dosage: 5 ML, BID
     Route: 048
     Dates: start: 20110715

REACTIONS (1)
  - DRUG INEFFECTIVE [None]
